FAERS Safety Report 20715389 (Version 1)
Quarter: 2022Q2

REPORT INFORMATION
  Report Type: Spontaneous
  Country: US (occurrence: US)
  Receive Date: 20220415
  Receipt Date: 20220415
  Transmission Date: 20220721
  Serious: No
  Sender: FDA-Public Use
  Company Number: US-PFIZER INC-2021672961

PATIENT
  Age: 49 Year
  Sex: Female

DRUGS (1)
  1. XELJANZ XR [Suspect]
     Active Substance: TOFACITINIB CITRATE
     Indication: Rheumatoid arthritis
     Dosage: 11 MG, 1X/DAY
     Route: 048
     Dates: start: 20210329

REACTIONS (8)
  - Headache [Unknown]
  - Arthralgia [Unknown]
  - Abdominal discomfort [Unknown]
  - Nausea [Unknown]
  - Pain [Unknown]
  - Swelling [Unknown]
  - Pain in extremity [Unknown]
  - Peripheral swelling [Unknown]
